FAERS Safety Report 18304770 (Version 1)
Quarter: 2020Q3

REPORT INFORMATION
  Report Type: Spontaneous
  Country: US (occurrence: US)
  Receive Date: 20200923
  Receipt Date: 20200923
  Transmission Date: 20201103
  Serious: No
  Sender: FDA-Public Use
  Company Number: US-009507513-2009USA003628

PATIENT
  Age: 30 Year
  Sex: Female

DRUGS (11)
  1. FENTANYL. [Suspect]
     Active Substance: FENTANYL
     Dosage: 2 MICROGRAM PER MILLILITER RUNNING AT 2 MILLILITER, QH
  2. TREPROSTINIL. [Suspect]
     Active Substance: TREPROSTINIL
     Dosage: 9 DOSAGE FORM, QID
  3. ROPIVACAINE HYDROCHLORIDE. [Suspect]
     Active Substance: ROPIVACAINE HYDROCHLORIDE
     Dosage: UNK
  4. OXYGEN. [Suspect]
     Active Substance: OXYGEN
     Dosage: UNK
  5. SILDENAFIL CITRATE. [Suspect]
     Active Substance: SILDENAFIL CITRATE
     Dosage: 20 MILLIGRAM, TID
     Route: 048
  6. ENOXAPARIN SODIUM. [Suspect]
     Active Substance: ENOXAPARIN SODIUM
     Dosage: 40 MILLIGRAM, QD
  7. BUPIVACAINE. [Suspect]
     Active Substance: BUPIVACAINE
     Dosage: SMALL BOLUSES OF 2 TO 4 ML AND GRADUAL TITRATION TO 8 ML/H
  8. EPOPROSTENOL. [Suspect]
     Active Substance: EPOPROSTENOL
     Dosage: 1 NG/KG/MIN AND GRADUALLY INCREASED TO 17 NG/KG/MIN OVER A 2?WEEK
     Route: 042
  9. HEPARIN [Suspect]
     Active Substance: HEPARIN SODIUM
     Dosage: 7,500 U OF UNFRACTIONATED HEPARIN
     Route: 058
  10. OXYTOCIN. [Suspect]
     Active Substance: OXYTOCIN
     Dosage: FORTY UNITS OF INTRAVENOUS OXYTOCIN WAS ADMINISTERED OVER 30 MINUTES
     Route: 042
  11. CELESTONE SOLUSPAN [Suspect]
     Active Substance: BETAMETHASONE ACETATE\BETAMETHASONE SODIUM PHOSPHATE
     Indication: MATERNAL THERAPY TO ENHANCE FOETAL LUNG MATURITY
     Dosage: UNK

REACTIONS (1)
  - Maternal exposure during pregnancy [Unknown]
